FAERS Safety Report 11254202 (Version 1)
Quarter: 2015Q3

REPORT INFORMATION
  Report Type: Spontaneous
  Country: US (occurrence: None)
  Receive Date: 20150708
  Receipt Date: 20150708
  Transmission Date: 20151125
  Serious: Yes (Hospitalization, Disabling)
  Sender: FDA-Public Use
  Company Number: None

PATIENT
  Age: 71 Year
  Sex: Female
  Weight: 104.33 kg

DRUGS (9)
  1. SIMVASTATIN. [Concomitant]
     Active Substance: SIMVASTATIN
  2. PREDNISONE. [Concomitant]
     Active Substance: PREDNISONE
  3. K GLUCONATE [Concomitant]
     Active Substance: POTASSIUM GLUCONATE
  4. SPIRONALDACTONE [Concomitant]
  5. AGRYLIN [Suspect]
     Active Substance: ANAGRELIDE HYDROCHLORIDE
     Indication: ESSENTIAL THROMBOCYTHAEMIA
     Dosage: II AM I QHS PO
     Route: 048
     Dates: start: 20010401, end: 20150505
  6. ASA [Concomitant]
     Active Substance: ASPIRIN
  7. TOPORAL [Concomitant]
  8. HYDROXY UREA [Concomitant]
  9. LASIX [Concomitant]
     Active Substance: FUROSEMIDE

REACTIONS (7)
  - Pruritus [None]
  - Interstitial lung disease [None]
  - Dizziness [None]
  - Muscle spasms [None]
  - Pericarditis constrictive [None]
  - Right ventricular failure [None]
  - Drug effect decreased [None]

NARRATIVE: CASE EVENT DATE: 20150504
